FAERS Safety Report 16238453 (Version 1)
Quarter: 2019Q2

REPORT INFORMATION
  Report Type: Spontaneous
  Country: FR (occurrence: FR)
  Receive Date: 20190425
  Receipt Date: 20190425
  Transmission Date: 20190711
  Serious: Yes (Other)
  Sender: FDA-Public Use
  Company Number: FR-PFIZER INC-2019175627

PATIENT
  Age: 36 Year
  Sex: Female
  Weight: 50 kg

DRUGS (1)
  1. LYRICA [Suspect]
     Active Substance: PREGABALIN
     Indication: FIBROMYALGIA
     Dosage: 25 MG, 1X/DAY
     Route: 048
     Dates: start: 201801, end: 20190204

REACTIONS (11)
  - Cardiac arrest [Recovered/Resolved]
  - Breast enlargement [Recovered/Resolved]
  - Muscle hypertrophy [Recovered/Resolved]
  - Vision blurred [Unknown]
  - Arrhythmia [Unknown]
  - Exercise tolerance decreased [Unknown]
  - Disturbance in attention [Unknown]
  - Fatigue [Unknown]
  - Arterial disorder [Recovered/Resolved]
  - Peripheral swelling [Recovered/Resolved]
  - Gait disturbance [Unknown]
